FAERS Safety Report 8028247-6 (Version None)
Quarter: 2011Q4

REPORT INFORMATION
  Report Type: 
  Country: None (occurrence: None)
  Receive Date: 20111130
  Receipt Date: 20110620
  Transmission Date: 20120403
  Serious: Yes (Other)
  Sender: FDA-Public Use
  Company Number: US200910005438

PATIENT
  Sex: Male
  Weight: 120.2 kg

DRUGS (9)
  1. SIMVASTATIN [Concomitant]
  2. ACTOS [Concomitant]
  3. GLIMEPIRIDE [Concomitant]
  4. LISINOPRIL [Concomitant]
  5. EXENATIDE UNK STRENGTH PEN, DISPOSABLE DEVICE (EXENATIDE PEN (UNKNOWN [Concomitant]
  6. HYDROCHLOROTHIAZIDE [Concomitant]
  7. LASIX [Concomitant]
  8. AMARYL [Concomitant]
  9. BYETTA [Suspect]
     Dates: start: 20060201, end: 20081201

REACTIONS (1)
  - RENAL FAILURE CHRONIC [None]
